FAERS Safety Report 9298216 (Version 1)
Quarter: 2013Q2

REPORT INFORMATION
  Report Type: Spontaneous
  Country: US (occurrence: None)
  Receive Date: 20130515
  Receipt Date: 20130515
  Transmission Date: 20140414
  Serious: Yes (Other)
  Sender: FDA-Public Use
  Company Number: LMI-2013-00179

PATIENT
  Age: 62 Year
  Sex: Female
  Weight: 96.62 kg

DRUGS (21)
  1. DEFINITY [Suspect]
     Indication: ECHOCARDIOGRAM
     Dosage: 1.5ML DEFINTIY DILTUED WITH 8.5 ML NORMAL  (3ML, INTRAVENOUS BOLUS)
     Route: 040
     Dates: start: 20130430, end: 20130430
  2. SIMVASTATIN (SIMVASTATIN) [Concomitant]
  3. METFORMIN (METFORMIN) [Concomitant]
  4. LISINOPRIL (LISINOPRIL) [Concomitant]
  5. INSULIN (INSULIN) [Concomitant]
  6. GLIMEPIRIDE (GLIMEPIRIDE) [Concomitant]
  7. FISH OIL (FISH OIL) [Concomitant]
  8. CALCIUM CARBONATE (CALCIUM CARBONATE) [Concomitant]
  9. D3 (COLECALCIFEROL) [Concomitant]
  10. ASCORBIC ACID (ASCORBIC ACID) [Concomitant]
  11. AMLODIPINE (AMLODIPINE) [Concomitant]
  12. ZITHROMAX (AZITHROMYCIN) [Concomitant]
  13. CAPTOPRIL (CAPTOPRIL) [Concomitant]
  14. COREG (CARVEDILOL) [Concomitant]
  15. LASIX (FUROSEMIDE) [Concomitant]
  16. HEPARIN (HEPARIN) [Concomitant]
  17. NITROGLYCERIN (GLYCERYL TRINITRATE) [Concomitant]
  18. POTASSIUM CHLORIDE (POTASSIUM CHLORIDE) [Concomitant]
  19. SENOKOT (SENNA ALEXANDRINA) [Concomitant]
  20. SODIUM CHLORIDE [Concomitant]
  21. AMBIEN (ZOLPIDEM TARTRATE) [Concomitant]

REACTIONS (4)
  - Cough [None]
  - Dyspnoea [None]
  - Oxygen saturation decreased [None]
  - Myocardial infarction [None]
